FAERS Safety Report 18453891 (Version 1)
Quarter: 2020Q4

REPORT INFORMATION
  Report Type: Spontaneous
  Country: US (occurrence: US)
  Receive Date: 20201102
  Receipt Date: 20201102
  Transmission Date: 20210114
  Serious: Yes (Death, Other)
  Sender: FDA-Public Use
  Company Number: US-PURDUE-USA-2020-0173704

PATIENT
  Sex: Male

DRUGS (1)
  1. HYDROMORPHONE TABLETS [Suspect]
     Active Substance: HYDROMORPHONE
     Indication: PRODUCT USED FOR UNKNOWN INDICATION
     Dosage: UNK
     Route: 048

REACTIONS (18)
  - Bone pain [Unknown]
  - Sleep disorder [Unknown]
  - Diarrhoea [Unknown]
  - Overdose [Unknown]
  - Hyperaesthesia [Unknown]
  - Decreased appetite [Unknown]
  - Vomiting [Unknown]
  - Confusional state [Unknown]
  - Nausea [Unknown]
  - Constipation [Unknown]
  - Death [Fatal]
  - Drug dependence [Unknown]
  - Myalgia [Unknown]
  - Cold sweat [Unknown]
  - Somnolence [Unknown]
  - Ill-defined disorder [Unknown]
  - Drug withdrawal syndrome [Unknown]
  - Respiratory rate decreased [Unknown]

NARRATIVE: CASE EVENT DATE: 20090529
